FAERS Safety Report 11439759 (Version 1)
Quarter: 2015Q3

REPORT INFORMATION
  Report Type: Spontaneous
  Country: US (occurrence: US)
  Receive Date: 20150901
  Receipt Date: 20150901
  Transmission Date: 20151125
  Serious: No
  Sender: FDA-Public Use
  Company Number: US-ROCHE-1108923

PATIENT
  Sex: Female

DRUGS (2)
  1. PEGASYS [Suspect]
     Active Substance: PEGINTERFERON ALFA-2A
     Indication: CHRONIC HEPATITIS C
     Dosage: FORM OF ADMIN PROCLICK INJECTOR
     Route: 065
     Dates: start: 20120817
  2. RIBAVIRIN. [Suspect]
     Active Substance: RIBAVIRIN
     Indication: CHRONIC HEPATITIS C
     Route: 065
     Dates: start: 20120817

REACTIONS (5)
  - Rash pruritic [Unknown]
  - Ear infection [Unknown]
  - Localised infection [Recovering/Resolving]
  - Skin ulcer [Unknown]
  - Ear pain [Not Recovered/Not Resolved]
